FAERS Safety Report 7382876-1 (Version None)
Quarter: 2011Q1

REPORT INFORMATION
  Report Type: 
  Country: None (occurrence: None)
  Receive Date: 20110330
  Receipt Date: 20101005
  Transmission Date: 20110831
  Serious: Yes (Death, Hospitalization)
  Sender: FDA-Public Use
  Company Number: US-BAYER-201020467NA

PATIENT
  Sex: Female
  Weight: 54.422 kg

DRUGS (15)
  1. TORADOL [Concomitant]
     Dosage: 10 MG, UNK
     Dates: start: 20080227
  2. SINGULAIR [Concomitant]
  3. ANAPROX DS [Concomitant]
  4. CYMBALTA [Concomitant]
     Dosage: 300 MG, UNK
  5. CLONAZEPAM [Concomitant]
  6. TRAZODONE [Concomitant]
     Dosage: 150 MG, HS
  7. YAZ [Suspect]
  8. FLEXERIL [Concomitant]
     Indication: INSOMNIA
  9. PROTONIX [Concomitant]
     Dosage: 40 MG, UNK
     Dates: start: 20080227
  10. VALIUM [Concomitant]
     Indication: INSOMNIA
  11. YAZ [Suspect]
     Indication: PREMENSTRUAL SYNDROME
     Dosage: UNK
     Dates: start: 20080125, end: 20080226
  12. MULTI-VITAMINS [Concomitant]
  13. UNISOM [Concomitant]
     Indication: INSOMNIA
     Dosage: UNK
     Dates: start: 20080201, end: 20080201
  14. IBUPROFEN [Concomitant]
     Indication: DYSMENORRHOEA
  15. AMBIEN [Concomitant]
     Indication: INSOMNIA
     Dosage: UNK UNK, HS
     Dates: start: 20080226

REACTIONS (1)
  - CONVULSION [None]
